FAERS Safety Report 8443505-9 (Version None)
Quarter: 2012Q2

REPORT INFORMATION
  Report Type: 
  Country: None (occurrence: None)
  Receive Date: 20120618
  Receipt Date: 20120607
  Transmission Date: 20120825
  Serious: Yes (Death, Hospitalization)
  Sender: FDA-Public Use
  Company Number: JP-JNJFOC-20120210798

PATIENT
  Sex: Female
  Weight: 29 kg

DRUGS (6)
  1. MUCODYNE [Concomitant]
     Indication: SUPPORTIVE CARE
     Dosage: 1500 MG AND 500 MG ONCE A DAY
     Route: 048
  2. REMICADE [Suspect]
     Indication: COLITIS ULCERATIVE
     Dosage: FIRST DOSE
     Route: 042
     Dates: start: 20111004
  3. RABEPRAZOLE SODIUM [Concomitant]
     Indication: GASTROOESOPHAGEAL REFLUX DISEASE
     Route: 048
  4. REMICADE [Suspect]
     Dosage: FOURTH DOSE
     Route: 042
     Dates: start: 20120130
  5. ASACOL [Concomitant]
     Indication: COLITIS ULCERATIVE
     Route: 048
  6. THEOLONG [Concomitant]
     Indication: SUPPORTIVE CARE
     Dosage: 2 TAB AND 1 TAB, ONCE A DAY
     Route: 048

REACTIONS (3)
  - PNEUMONIA BACTERIAL [None]
  - LUNG DISORDER [None]
  - INTERSTITIAL LUNG DISEASE [None]
